FAERS Safety Report 9964043 (Version 1)
Quarter: 2014Q1

REPORT INFORMATION
  Report Type: Report from Study
  Country: FR (occurrence: FR)
  Receive Date: 20140305
  Receipt Date: 20140305
  Transmission Date: 20141002
  Serious: Yes (Life-Threatening)
  Sender: FDA-Public Use
  Company Number: FR-TEVA-466612USA

PATIENT
  Age: 67 Year
  Sex: Male

DRUGS (38)
  1. LEVACT [Suspect]
     Indication: B-CELL SMALL LYMPHOCYTIC LYMPHOMA
     Dosage: CONCENTRATION: 2.5 MG/ML; CYCLIC
     Route: 041
     Dates: start: 20121130
  2. LEVACT [Suspect]
     Indication: B-CELL SMALL LYMPHOCYTIC LYMPHOMA
     Dosage: CONCENTRATION: 2.5 MG/ML; CYCLIC
     Route: 041
  3. LEVACT [Suspect]
     Indication: B-CELL SMALL LYMPHOCYTIC LYMPHOMA
     Dosage: CONCENTRATION: 2.5 MG/ML; CYCLIC
     Route: 041
     Dates: start: 20121229
  4. LEVACT [Suspect]
     Indication: B-CELL SMALL LYMPHOCYTIC LYMPHOMA
     Dosage: CONCENTRATION: 2.5 MG/ML; CYCLIC
     Route: 041
     Dates: start: 20121230
  5. LEVACT [Suspect]
     Indication: B-CELL SMALL LYMPHOCYTIC LYMPHOMA
     Dosage: CONCENTRATION: 2.5 MG/ML; CYCLIC
     Route: 041
     Dates: start: 20130125
  6. LEVACT [Suspect]
     Indication: B-CELL SMALL LYMPHOCYTIC LYMPHOMA
     Dosage: CONCENTRATION: 2.5 MG/ML; CYCLIC
     Route: 041
     Dates: start: 20130126
  7. LEVACT [Suspect]
     Indication: B-CELL SMALL LYMPHOCYTIC LYMPHOMA
     Dosage: CONCENTRATION: 2.5 MG/ML; CYCLIC
     Route: 041
     Dates: start: 20130223
  8. LEVACT [Suspect]
     Indication: B-CELL SMALL LYMPHOCYTIC LYMPHOMA
     Dosage: CONCENTRATION: 2.5 MG/ML; CYCLIC
     Route: 041
     Dates: start: 20130224
  9. LEVACT [Suspect]
     Indication: B-CELL SMALL LYMPHOCYTIC LYMPHOMA
     Dosage: CONCENTRATION: 2.5 MG/ML; CYCLIC
     Route: 041
     Dates: start: 20130323
  10. LEVACT [Suspect]
     Indication: B-CELL SMALL LYMPHOCYTIC LYMPHOMA
     Dosage: CONCENTRATION: 2.5 MG/ML; CYCLIC
     Route: 041
     Dates: start: 20130324
  11. LEVACT [Suspect]
     Indication: B-CELL SMALL LYMPHOCYTIC LYMPHOMA
     Dosage: CONCENTRATION: 2.5 MG/ML; CYCLIC
     Route: 041
     Dates: start: 20130420
  12. LEVACT [Suspect]
     Indication: B-CELL SMALL LYMPHOCYTIC LYMPHOMA
     Dosage: CONCENTRATION: 2.5 MG/ML; CYCLIC
     Route: 041
     Dates: start: 20130421
  13. ARZERRA [Suspect]
     Indication: B-CELL SMALL LYMPHOCYTIC LYMPHOMA
     Dosage: UNKNOWN/D
     Route: 041
     Dates: start: 20121122
  14. ARZERRA [Suspect]
     Indication: B-CELL SMALL LYMPHOCYTIC LYMPHOMA
     Route: 041
     Dates: start: 20121129
  15. ARZERRA [Suspect]
     Indication: B-CELL SMALL LYMPHOCYTIC LYMPHOMA
     Route: 041
     Dates: start: 20121228
  16. ARZERRA [Suspect]
     Indication: B-CELL SMALL LYMPHOCYTIC LYMPHOMA
     Route: 041
     Dates: start: 20130125
  17. ARZERRA [Suspect]
     Indication: B-CELL SMALL LYMPHOCYTIC LYMPHOMA
     Route: 041
     Dates: start: 20130222
  18. ARZERRA [Suspect]
     Indication: B-CELL SMALL LYMPHOCYTIC LYMPHOMA
     Route: 041
     Dates: start: 20130322
  19. ARZERRA [Suspect]
     Indication: B-CELL SMALL LYMPHOCYTIC LYMPHOMA
     Route: 041
     Dates: start: 20130419
  20. SOLUMEDROL [Suspect]
     Indication: B-CELL SMALL LYMPHOCYTIC LYMPHOMA
     Dosage: CYCLIC
     Route: 041
     Dates: start: 20121122
  21. SOLUMEDROL [Suspect]
     Indication: B-CELL SMALL LYMPHOCYTIC LYMPHOMA
     Dosage: CYCLIC
     Route: 041
     Dates: start: 20121129
  22. SOLUMEDROL [Suspect]
     Indication: B-CELL SMALL LYMPHOCYTIC LYMPHOMA
     Dosage: CYCLIC
     Route: 041
     Dates: start: 20121130
  23. SOLUMEDROL [Suspect]
     Indication: B-CELL SMALL LYMPHOCYTIC LYMPHOMA
     Dosage: CYCLIC
     Route: 041
     Dates: start: 20121201
  24. SOLUMEDROL [Suspect]
     Indication: B-CELL SMALL LYMPHOCYTIC LYMPHOMA
     Dosage: CYCLIC
     Route: 041
     Dates: start: 20121228
  25. SOLUMEDROL [Suspect]
     Indication: B-CELL SMALL LYMPHOCYTIC LYMPHOMA
     Dosage: CYCLIC
     Route: 041
     Dates: start: 20121229
  26. SOLUMEDROL [Suspect]
     Indication: B-CELL SMALL LYMPHOCYTIC LYMPHOMA
     Dosage: CYCLIC
     Route: 041
     Dates: start: 20121230
  27. SOLUMEDROL [Suspect]
     Indication: B-CELL SMALL LYMPHOCYTIC LYMPHOMA
     Dosage: CYCLIC
     Route: 041
     Dates: start: 20130125
  28. SOLUMEDROL [Suspect]
     Indication: B-CELL SMALL LYMPHOCYTIC LYMPHOMA
     Dosage: CYCLIC
     Route: 041
     Dates: start: 20130126
  29. SOLUMEDROL [Suspect]
     Indication: B-CELL SMALL LYMPHOCYTIC LYMPHOMA
     Dosage: CYCLIC
     Route: 041
     Dates: start: 20130127
  30. SOLUMEDROL [Suspect]
     Indication: B-CELL SMALL LYMPHOCYTIC LYMPHOMA
     Dosage: CYCLIC
     Route: 041
     Dates: start: 20130222
  31. SOLUMEDROL [Suspect]
     Indication: B-CELL SMALL LYMPHOCYTIC LYMPHOMA
     Dosage: CYCLIC
     Route: 041
     Dates: start: 20130223
  32. SOLUMEDROL [Suspect]
     Indication: B-CELL SMALL LYMPHOCYTIC LYMPHOMA
     Dosage: CYCLIC
     Route: 041
     Dates: start: 20130224
  33. SOLUMEDROL [Suspect]
     Indication: B-CELL SMALL LYMPHOCYTIC LYMPHOMA
     Dosage: CYCLIC
     Route: 041
     Dates: start: 20130322
  34. SOLUMEDROL [Suspect]
     Indication: B-CELL SMALL LYMPHOCYTIC LYMPHOMA
     Dosage: CYCLIC
     Route: 041
     Dates: start: 20130323
  35. SOLUMEDROL [Suspect]
     Indication: B-CELL SMALL LYMPHOCYTIC LYMPHOMA
     Dosage: CYCLIC
     Route: 041
     Dates: start: 20130324
  36. SOLUMEDROL [Suspect]
     Indication: B-CELL SMALL LYMPHOCYTIC LYMPHOMA
     Dosage: CYCLIC
     Route: 041
     Dates: start: 20130419
  37. SOLUMEDROL [Suspect]
     Indication: B-CELL SMALL LYMPHOCYTIC LYMPHOMA
     Dosage: CYCLIC
     Route: 041
     Dates: start: 20130420
  38. SOLUMEDROL [Suspect]
     Indication: B-CELL SMALL LYMPHOCYTIC LYMPHOMA
     Dosage: CYCLIC
     Route: 041
     Dates: start: 20130421

REACTIONS (1)
  - Squamous cell carcinoma [Not Recovered/Not Resolved]
